FAERS Safety Report 6735344-1 (Version None)
Quarter: 2010Q2

REPORT INFORMATION
  Report Type: 
  Country: None (occurrence: None)
  Receive Date: 20100520
  Receipt Date: 20100520
  Transmission Date: 20101027
  Serious: No
  Sender: FDA-Public Use
  Company Number: None

PATIENT
  Age: 57 Year
  Sex: Female
  Weight: 52.1637 kg

DRUGS (1)
  1. ZICAM NASAL GEL MATRIXX INITIATIVES [Suspect]
     Indication: NASOPHARYNGITIS
     Dosage: 1 SPRAY 3 TIMES A DAY NASAL
     Route: 045
     Dates: start: 20090215, end: 20090220

REACTIONS (1)
  - AGEUSIA [None]
